FAERS Safety Report 4380379-X (Version None)
Quarter: 2004Q2

REPORT INFORMATION
  Report Type: 
  Country: None (occurrence: None)
  Receive Date: 20040616
  Receipt Date: 20040616
  Transmission Date: 20050107
  Serious: Yes (Hospitalization)
  Sender: FDA-Public Use
  Company Number: None

PATIENT
  Sex: Male
  Weight: 74.8435 kg

DRUGS (15)
  1. GEMCITABINE [Suspect]
     Indication: COLON CANCER METASTATIC
     Dosage: 144 MG IV Q 2 WKS
     Route: 042
     Dates: start: 20040323
  2. GEMCITABINE [Suspect]
     Indication: COLON CANCER METASTATIC
     Dosage: 144 MG IV Q 2 WKS
     Route: 042
     Dates: start: 20040406
  3. GEMCITABINE [Suspect]
     Indication: COLON CANCER METASTATIC
     Dosage: 144 MG IV Q 2 WKS
     Route: 042
     Dates: start: 20040428
  4. GEMCITABINE [Suspect]
     Indication: COLON CANCER METASTATIC
     Dosage: 144 MG IV Q 2 WKS
     Route: 042
     Dates: start: 20040511
  5. IRINOTECAN [Suspect]
     Indication: COLON CANCER METASTATIC
     Dosage: 172 MG IV Q 2 WKS
     Route: 042
     Dates: start: 20040323
  6. IRINOTECAN [Suspect]
     Indication: COLON CANCER METASTATIC
     Dosage: 172 MG IV Q 2 WKS
     Route: 042
     Dates: start: 20040406
  7. IRINOTECAN [Suspect]
     Indication: COLON CANCER METASTATIC
     Dosage: 172 MG IV Q 2 WKS
     Route: 042
     Dates: start: 20040428
  8. IRINOTECAN [Suspect]
     Indication: COLON CANCER METASTATIC
     Dosage: 172 MG IV Q 2 WKS
     Route: 042
     Dates: start: 20040511
  9. PROTONIX [Concomitant]
  10. REGLAN [Concomitant]
  11. OXYCODONE [Concomitant]
  12. IBUPROFEN [Concomitant]
  13. IRON GLUCONATE [Concomitant]
  14. COUMADIN [Concomitant]
  15. CLONIDINE HCL [Concomitant]

REACTIONS (1)
  - SMALL INTESTINAL OBSTRUCTION [None]
